FAERS Safety Report 4817373-8 (Version None)
Quarter: 2005Q4

REPORT INFORMATION
  Report Type: 
  Country: None (occurrence: None)
  Receive Date: 20051031
  Receipt Date: 20051017
  Transmission Date: 20060501
  Serious: Yes (Life-Threatening, Hospitalization)
  Sender: FDA-Public Use
  Company Number: 0510021

PATIENT
  Sex: Female
  Weight: 12 kg

DRUGS (3)
  1. NEPHRAMINE 5.4% [Suspect]
     Indication: PARENTERAL NUTRITION
     Dates: start: 20051013
  2. M.V.I. PEDIATRIC [Concomitant]
  3. PHYTONADIONE [Concomitant]

REACTIONS (5)
  - DEPRESSED LEVEL OF CONSCIOUSNESS [None]
  - RETCHING [None]
  - SCREAMING [None]
  - TARDIVE DYSKINESIA [None]
  - VOMITING [None]
